FAERS Safety Report 20899771 (Version 1)
Quarter: 2022Q2

REPORT INFORMATION
  Report Type: Spontaneous
  Country: US (occurrence: None)
  Receive Date: 20220531
  Receipt Date: 20220531
  Transmission Date: 20220721
  Serious: Yes (Other)
  Sender: FDA-Public Use
  Company Number: None

PATIENT
  Age: 64 Year
  Sex: Male

DRUGS (6)
  1. BEBTELOVIMAB [Suspect]
     Active Substance: BEBTELOVIMAB
     Dates: start: 20220519, end: 20220519
  2. tamsulosin (Flomax) 0.4mg capsule [Concomitant]
  3. sildenafil (Revatio) 20mg tablet [Concomitant]
  4. amlodipine (Norvasc) 10mg tablet [Concomitant]
  5. atorvastatin (Lipitor) 20mg tablet [Concomitant]
  6. benzapril (Lotensin) 10mg tablet [Concomitant]

REACTIONS (4)
  - Dizziness [None]
  - Pallor [None]
  - Hypotension [None]
  - Infusion related reaction [None]

NARRATIVE: CASE EVENT DATE: 20220519
